FAERS Safety Report 22028628 (Version 1)
Quarter: 2023Q1

REPORT INFORMATION
  Report Type: Spontaneous
  Country: FR (occurrence: FR)
  Receive Date: 20230223
  Receipt Date: 20230223
  Transmission Date: 20230417
  Serious: Yes (Other)
  Sender: FDA-Public Use
  Company Number: None

PATIENT
  Age: 80 Year
  Sex: Male
  Weight: 96 kg

DRUGS (2)
  1. AMIODARONE [Suspect]
     Active Substance: AMIODARONE
     Indication: Arrhythmia
     Dosage: 200 MG, QD, 1 TABLET OF 200 MG /DAY
     Route: 048
     Dates: start: 20190401, end: 20221126
  2. AMIODARONE [Suspect]
     Active Substance: AMIODARONE
     Dosage: 100 MG, QD, 1/2 TAB OF 200 MG /DAY.
     Route: 048
     Dates: start: 20221126, end: 20221222

REACTIONS (1)
  - Extrapyramidal disorder [Recovering/Resolving]

NARRATIVE: CASE EVENT DATE: 20190101
